FAERS Safety Report 23488100 (Version 1)
Quarter: 2024Q1

REPORT INFORMATION
  Report Type: Report from Study
  Country: TR (occurrence: TR)
  Receive Date: 20240206
  Receipt Date: 20240206
  Transmission Date: 20240410
  Serious: Yes (Hospitalization)
  Sender: FDA-Public Use
  Company Number: TR-ABBVIE-5619655

PATIENT
  Sex: Female
  Weight: 85 kg

DRUGS (4)
  1. CARBIDOPA\LEVODOPA [Suspect]
     Active Substance: CARBIDOPA\LEVODOPA
     Indication: Parkinson^s disease
     Dosage: MORNING DOSE (ML): 6.00 CONTINUOUS DOSE (ML): 5.00 EXTRA DOSE (ML): 3.00
     Route: 050
     Dates: start: 20190312
  2. CARBIDOPA\LEVODOPA [Suspect]
     Active Substance: CARBIDOPA\LEVODOPA
  3. BENSERAZIDE HYDROCHLORIDE\LEVODOPA [Concomitant]
     Active Substance: BENSERAZIDE HYDROCHLORIDE\LEVODOPA
     Indication: Parkinson^s disease
     Route: 048
     Dates: start: 2017
  4. AMANTADINE SULFATE [Concomitant]
     Active Substance: AMANTADINE SULFATE
     Indication: Parkinson^s disease
     Dosage: TIME INTERVAL: 0.33333333 DAYS: FORM STRENGTH: 100 MILLIGRAM
     Route: 048
     Dates: start: 2017

REACTIONS (2)
  - General physical health deterioration [Recovered/Resolved]
  - Decubitus ulcer [Not Recovered/Not Resolved]
